FAERS Safety Report 11845213 (Version 2)
Quarter: 2016Q1

REPORT INFORMATION
  Report Type: Spontaneous
  Country: US (occurrence: US)
  Receive Date: 20151217
  Receipt Date: 20160107
  Transmission Date: 20160526
  Serious: Yes (Hospitalization)
  Sender: FDA-Public Use
  Company Number: US-PFIZER INC-2015409426

PATIENT
  Age: 71 Year
  Sex: Female
  Weight: 76 kg

DRUGS (1)
  1. RAPAMUNE [Suspect]
     Active Substance: SIROLIMUS
     Indication: TRANSPLANT REJECTION
     Dosage: 2 MG, 1X/DAY

REACTIONS (2)
  - Abdominal hernia [Unknown]
  - Product use issue [Unknown]
